FAERS Safety Report 13858279 (Version 1)
Quarter: 2017Q3

REPORT INFORMATION
  Report Type: Other
  Country: GB (occurrence: GB)
  Receive Date: 20170811
  Receipt Date: 20170811
  Transmission Date: 20171127
  Serious: Yes (Death, Other)
  Sender: FDA-Public Use
  Company Number: GB-APOTEX-2017AP016212

PATIENT
  Age: 35 Year
  Sex: Male
  Weight: 79 kg

DRUGS (12)
  1. DIAZEPAM. [Suspect]
     Active Substance: DIAZEPAM
     Indication: ANXIETY
     Dosage: 2.5 MG, UNK
     Route: 048
     Dates: start: 2007
  2. ZOPICLONE TABLETS [Suspect]
     Active Substance: ZOPICLONE
     Indication: INSOMNIA
     Dosage: 3.75 MG, UNK
     Route: 048
     Dates: start: 2007
  3. ALCOHOL. [Suspect]
     Active Substance: ALCOHOL
     Indication: PRODUCT USED FOR UNKNOWN INDICATION
     Route: 048
  4. ZAPONEX [Suspect]
     Active Substance: CLOZAPINE
     Indication: SCHIZOPHRENIA
     Dosage: 550 MG, UNK
     Route: 048
     Dates: start: 20041112, end: 200702
  5. PAROXETINE. [Suspect]
     Active Substance: PAROXETINE
     Indication: DEPRESSED MOOD
     Dosage: 20 MG, UNK
     Route: 048
  6. LANSOPRAZOLE. [Concomitant]
     Active Substance: LANSOPRAZOLE
     Indication: ABDOMINAL PAIN UPPER
     Dosage: 30 MG, UNK
     Route: 048
  7. PROCYCLIDINE [Concomitant]
     Active Substance: PROCYCLIDINE
     Indication: EXTRAPYRAMIDAL DISORDER
     Dosage: 5 MG, UNK
     Route: 048
     Dates: start: 2007
  8. COCODAMOL [Concomitant]
     Active Substance: ACETAMINOPHEN\CODEINE PHOSPHATE
     Indication: BACK PAIN
     Dosage: UNK MG, UNK
     Route: 065
     Dates: start: 201304
  9. SENNA PLUS                         /00142201/ [Concomitant]
     Indication: CONSTIPATION
     Dosage: 2 DF, UNK
     Route: 048
  10. EPILIM [Suspect]
     Active Substance: VALPROATE SODIUM
     Indication: PRODUCT USED FOR UNKNOWN INDICATION
     Dosage: 200 MG, UNK
     Route: 048
     Dates: start: 2007
  11. ZAPONEX [Suspect]
     Active Substance: CLOZAPINE
     Dosage: UNK
     Route: 065
     Dates: start: 20070219, end: 20130507
  12. HYOSCINE N-BUTYLBROMIDE [Suspect]
     Active Substance: BUTYLSCOPOLAMINE
     Indication: SALIVARY HYPERSECRETION
     Dosage: 300 ?G, UNK
     Route: 048

REACTIONS (7)
  - Lower respiratory tract infection [Fatal]
  - Alcohol interaction [Fatal]
  - Gastritis erosive [Fatal]
  - Pulmonary oedema [Fatal]
  - Drug interaction [Fatal]
  - Toxicity to various agents [Fatal]
  - Arteriosclerosis [Fatal]
